FAERS Safety Report 13661073 (Version 2)
Quarter: 2017Q2

REPORT INFORMATION
  Report Type: Spontaneous
  Country: DO (occurrence: DO)
  Receive Date: 20170616
  Receipt Date: 20170621
  Transmission Date: 20170830
  Serious: Yes (Hospitalization, Other)
  Sender: FDA-Public Use
  Company Number: DO-JNJFOC-20170608312

PATIENT
  Age: 52 Year
  Sex: Female

DRUGS (2)
  1. DARATUMUMAB [Suspect]
     Active Substance: DARATUMUMAB
     Indication: PLASMA CELL MYELOMA
  2. THALIDOMIDE [Concomitant]
     Active Substance: THALIDOMIDE
     Indication: PROPHYLAXIS

REACTIONS (12)
  - Asthenia [Unknown]
  - Drug ineffective [Unknown]
  - Anaemia [Unknown]
  - Fatigue [Unknown]
  - Constipation [Recovered/Resolved]
  - Decreased appetite [Unknown]
  - Cachexia [Unknown]
  - Diarrhoea [Recovered/Resolved]
  - Pallor [Unknown]
  - General physical health deterioration [Unknown]
  - Disease progression [Unknown]
  - Epistaxis [Unknown]
